FAERS Safety Report 7345242-0 (Version None)
Quarter: 2011Q1

REPORT INFORMATION
  Report Type: 
  Country: None (occurrence: None)
  Receive Date: 20110310
  Receipt Date: 20110302
  Transmission Date: 20110831
  Serious: Yes (Hospitalization, Other)
  Sender: FDA-Public Use
  Company Number: IT-ELI_LILLY_AND_COMPANY-IT201101002322

PATIENT
  Sex: Male
  Weight: 75 kg

DRUGS (6)
  1. ZYPREXA [Suspect]
     Dosage: UNK, UNKNOWN
     Route: 048
     Dates: start: 20101210
  2. TAVOR [Concomitant]
  3. CHLORDESMETHYLDIAZEPAM [Concomitant]
  4. ZYPADHERA [Suspect]
     Indication: PSYCHOTIC DISORDER
     Dosage: 210 MG, UNKNOWN
     Route: 030
     Dates: start: 20101210
  5. ZYPADHERA [Suspect]
     Dosage: 300 MG, UNKNOWN
     Route: 030
     Dates: start: 20101229
  6. FLUPHENAZINE HCL [Concomitant]
     Indication: PSYCHOTIC DISORDER
     Dosage: 25 MG, EVERY 2 WEEKS

REACTIONS (10)
  - FALL [None]
  - PSYCHOMOTOR HYPERACTIVITY [None]
  - DISSOCIATION [None]
  - MOTOR DYSFUNCTION [None]
  - AMNESIA [None]
  - DYSARTHRIA [None]
  - ATAXIA [None]
  - COMA [None]
  - UNRESPONSIVE TO STIMULI [None]
  - CONFUSIONAL STATE [None]
